FAERS Safety Report 14012246 (Version 1)
Quarter: 2017Q3

REPORT INFORMATION
  Report Type: Spontaneous
  Country: US (occurrence: US)
  Receive Date: 20170926
  Receipt Date: 20170926
  Transmission Date: 20171128
  Serious: Yes (Other)
  Sender: FDA-Public Use
  Company Number: US-BAYER-2017-180278

PATIENT
  Age: 66 Year
  Sex: Male

DRUGS (3)
  1. CYCLOBENZAPRINE. [Concomitant]
     Active Substance: CYCLOBENZAPRINE
     Dosage: UNK
  2. ALEVE [Suspect]
     Active Substance: NAPROXEN SODIUM
     Indication: PAIN
     Dosage: 2 DF, QD
     Route: 048
     Dates: end: 2017
  3. ASPIRIN+CAFFEINE [Interacting]
     Active Substance: ASPIRIN\CAFFEINE
     Dosage: UNK
     Dates: end: 2017

REACTIONS (5)
  - Gastric haemorrhage [Recovered/Resolved]
  - Haemoglobin abnormal [Recovered/Resolved]
  - Incorrect drug administration duration [Unknown]
  - Product use issue [None]
  - Labelled drug-drug interaction medication error [None]

NARRATIVE: CASE EVENT DATE: 2017
